FAERS Safety Report 10991029 (Version 1)
Quarter: 2015Q2

REPORT INFORMATION
  Report Type: Spontaneous
  Country: IT (occurrence: IT)
  Receive Date: 20150406
  Receipt Date: 20150406
  Transmission Date: 20150821
  Serious: Yes (Death, Other)
  Sender: FDA-Public Use
  Company Number: IT-GLAXOSMITHKLINE-IT2015GSK043809

PATIENT
  Sex: Male

DRUGS (7)
  1. LEVODOPA [Suspect]
     Active Substance: LEVODOPA
     Indication: PARKINSONISM
     Dosage: 400 MG, QD
     Dates: start: 2012
  2. LEVODOPA [Suspect]
     Active Substance: LEVODOPA
     Dosage: DOSE HALVED
  3. ROPINIROLE. [Suspect]
     Active Substance: ROPINIROLE
     Indication: MULTIPLE SYSTEM ATROPHY
     Dosage: 8 MG, QD
  4. ROPINIROLE. [Suspect]
     Active Substance: ROPINIROLE
     Dosage: DOSE HALVED
  5. ROPINIROLE. [Suspect]
     Active Substance: ROPINIROLE
     Indication: PARKINSONISM
     Dosage: 4 MG, QD
     Dates: start: 2012
  6. LEVODOPA [Suspect]
     Active Substance: LEVODOPA
     Indication: MULTIPLE SYSTEM ATROPHY
     Dosage: 600 MG, QD
  7. LEVODOPA [Suspect]
     Active Substance: LEVODOPA
     Dosage: 1000 MG, QD

REACTIONS (12)
  - Pyrexia [Recovering/Resolving]
  - Dopamine dysregulation syndrome [Recovering/Resolving]
  - Obsessive-compulsive disorder [Recovering/Resolving]
  - Electrolyte imbalance [Recovering/Resolving]
  - Compulsive sexual behaviour [Recovering/Resolving]
  - Alcoholism [Recovering/Resolving]
  - Polydipsia [Recovering/Resolving]
  - Delirium [Recovering/Resolving]
  - Dyskinesia [Recovering/Resolving]
  - Pathological gambling [Recovering/Resolving]
  - Impulse-control disorder [Recovering/Resolving]
  - Pneumonia [Fatal]
